FAERS Safety Report 25041387 (Version 1)
Quarter: 2025Q1

REPORT INFORMATION
  Report Type: Spontaneous
  Country: US (occurrence: US)
  Receive Date: 20250305
  Receipt Date: 20250305
  Transmission Date: 20250408
  Serious: No
  Sender: BRISTOL-MYERS SQUIBB COMPANY
  Company Number: US-BRISTOL-MYERS SQUIBB COMPANY-2025-033112

PATIENT
  Age: 62 Year
  Sex: Female
  Weight: 75.75 kg

DRUGS (1)
  1. POMALYST [Suspect]
     Active Substance: POMALIDOMIDE
     Indication: Kaposi^s sarcoma
     Route: 048
     Dates: start: 20241122

REACTIONS (4)
  - Swelling face [Recovering/Resolving]
  - Erythema [Recovering/Resolving]
  - Feeling hot [Recovering/Resolving]
  - Off label use [Unknown]
